FAERS Safety Report 11173956 (Version 1)
Quarter: 2015Q2

REPORT INFORMATION
  Report Type: Report from Study
  Country: PE (occurrence: PE)
  Receive Date: 20150609
  Receipt Date: 20150609
  Transmission Date: 20150821
  Serious: Yes (Other)
  Sender: FDA-Public Use
  Company Number: PE-ABBVIE-15P-127-1405761-00

PATIENT
  Age: 48 Year
  Sex: Female
  Weight: 64 kg

DRUGS (1)
  1. HUMIRA [Suspect]
     Active Substance: ADALIMUMAB
     Indication: RHEUMATOID ARTHRITIS
     Route: 058
     Dates: start: 20150217, end: 20150521

REACTIONS (1)
  - Cyst [Unknown]

NARRATIVE: CASE EVENT DATE: 20150528
